FAERS Safety Report 24922582 (Version 1)
Quarter: 2025Q1

REPORT INFORMATION
  Report Type: Spontaneous
  Country: FR (occurrence: FR)
  Receive Date: 20250204
  Receipt Date: 20250204
  Transmission Date: 20250409
  Serious: Yes (Other)
  Sender: ABBVIE
  Company Number: FR-ABBVIE-6110856

PATIENT
  Age: 65 Year
  Sex: Male

DRUGS (1)
  1. RISANKIZUMAB [Suspect]
     Active Substance: RISANKIZUMAB
     Indication: Psoriasis
     Route: 058

REACTIONS (3)
  - Basal cell carcinoma metastatic [Unknown]
  - Malignant melanoma [Unknown]
  - Neoplasm malignant [Unknown]
